FAERS Safety Report 4479448-5 (Version None)
Quarter: 2004Q4

REPORT INFORMATION
  Report Type: 
  Country: None (occurrence: None)
  Receive Date: 20041015
  Receipt Date: 20040928
  Transmission Date: 20050328
  Serious: Yes (Hospitalization, Disabling)
  Sender: FDA-Public Use
  Company Number: PIR 0409052

PATIENT
  Sex: Male

DRUGS (1)
  1. 5% DEXTROSE AND 20% SODIUM CHLORIDE INJECTION USP [Suspect]
     Indication: CORONARY ARTERY SURGERY
     Dosage: SEE ATTACHED
     Dates: start: 20040810

REACTIONS (4)
  - CARDIAC DISORDER [None]
  - IATROGENIC INJURY [None]
  - MEDICATION ERROR [None]
  - PROCEDURAL COMPLICATION [None]
